FAERS Safety Report 6304096-1 (Version None)
Quarter: 2009Q3

REPORT INFORMATION
  Report Type: 
  Country: None (occurrence: None)
  Receive Date: 20090806
  Receipt Date: 20090803
  Transmission Date: 20100115
  Serious: Yes (Hospitalization)
  Sender: FDA-Public Use
  Company Number: 2009SP010184

PATIENT
  Age: 68 Year
  Sex: Female
  Weight: 69 kg

DRUGS (9)
  1. TEMOZOLOMIDE [Suspect]
     Indication: GLIOBLASTOMA MULTIFORME
     Dosage: 75 MG/M2
     Dates: start: 20090319, end: 20090505
  2. BEVACIZUMAB [Suspect]
     Indication: GLIOBLASTOMA MULTIFORME
     Dosage: 10 MG/KG;QOW
     Dates: start: 20090320, end: 20090501
  3. LIPITOR [Concomitant]
  4. ZANTAC [Concomitant]
  5. BENICAR HCT [Concomitant]
  6. ASPIRIN [Concomitant]
  7. KEPPRA [Concomitant]
  8. SENOKOT [Concomitant]
  9. ZOFRAN [Concomitant]

REACTIONS (6)
  - ANAEMIA [None]
  - FEBRILE NEUTROPENIA [None]
  - HYPONATRAEMIA [None]
  - LEUKOPENIA [None]
  - LOBAR PNEUMONIA [None]
  - NEUTROPHIL COUNT DECREASED [None]
